FAERS Safety Report 7832244-0 (Version None)
Quarter: 2011Q4

REPORT INFORMATION
  Report Type: 
  Country: None (occurrence: None)
  Receive Date: 20111022
  Receipt Date: 20111007
  Transmission Date: 20120403
  Serious: Yes (Hospitalization)
  Sender: FDA-Public Use
  Company Number: US-BAYER-2011-082060

PATIENT
  Age: 50 Year
  Sex: Female
  Weight: 61.224 kg

DRUGS (10)
  1. YAZ [Suspect]
     Indication: FIBROMA
  2. PROPRANOLOL [Concomitant]
     Indication: MIGRAINE
     Dosage: 80 MG, UNK
     Route: 048
     Dates: start: 20081113, end: 20090720
  3. DROSPIRENONE AND ETHINYL ESTRADIOL [Suspect]
     Indication: MENOPAUSE
     Dosage: UNK
     Dates: start: 20090201
  4. NITROFURANTOIN [Concomitant]
     Dosage: UNK
     Route: 048
     Dates: start: 20090207, end: 20090211
  5. IBUPROFEN [Concomitant]
     Dosage: 800 MG, UNK
     Route: 048
     Dates: start: 20090223, end: 20090410
  6. AMITRIPTYLINE HCL [Concomitant]
     Indication: MIGRAINE
     Dosage: 25 MG, UNK
     Route: 048
     Dates: start: 20081126, end: 20090327
  7. YAZ [Suspect]
     Indication: MENOPAUSE
     Dosage: UNK
     Dates: start: 20081201
  8. DROSPIRENONE AND ETHINYL ESTRADIOL [Suspect]
     Indication: FIBROMA
  9. PROMETRIUM [Concomitant]
     Dosage: 200 MG, UNK
     Route: 048
     Dates: start: 20090223, end: 20090410
  10. ESGIC [Concomitant]
     Indication: TENSION HEADACHE
     Dosage: UNK
     Dates: start: 20090501

REACTIONS (5)
  - APHASIA [None]
  - INJURY [None]
  - CEREBROVASCULAR ACCIDENT [None]
  - PAIN [None]
  - HYPOAESTHESIA [None]
